FAERS Safety Report 24845201 (Version 2)
Quarter: 2025Q1

REPORT INFORMATION
  Report Type: Spontaneous
  Country: US (occurrence: US)
  Receive Date: 20250115
  Receipt Date: 20250310
  Transmission Date: 20250409
  Serious: Yes (Other)
  Sender: PFIZER
  Company Number: US-PFIZER INC-PV202500004670

PATIENT
  Age: 59 Year
  Sex: Female
  Weight: 113.37 kg

DRUGS (3)
  1. RITUXIMAB [Suspect]
     Active Substance: RITUXIMAB
     Indication: Speech disorder
     Dates: start: 202411
  2. RITUXIMAB [Suspect]
     Active Substance: RITUXIMAB
     Indication: Coma
  3. RITUXIMAB [Suspect]
     Active Substance: RITUXIMAB
     Indication: Mental status changes

REACTIONS (2)
  - Off label use [Unknown]
  - Drug ineffective for unapproved indication [Unknown]

NARRATIVE: CASE EVENT DATE: 20241101
